FAERS Safety Report 6138090-0 (Version None)
Quarter: 2009Q1

REPORT INFORMATION
  Report Type: 
  Country: None (occurrence: None)
  Receive Date: 20090331
  Receipt Date: 20090326
  Transmission Date: 20090719
  Serious: Yes (Death, Other)
  Sender: FDA-Public Use
  Company Number: DE-AVENTIS-200910854DE

PATIENT
  Age: 70 Year
  Sex: Male

DRUGS (1)
  1. CLEXANE [Suspect]
     Indication: THROMBOSIS PROPHYLAXIS
     Dosage: DOSE: NOT REPORTED
     Route: 058

REACTIONS (3)
  - DEATH [None]
  - PELVIC HAEMORRHAGE [None]
  - RENAL IMPAIRMENT [None]
